FAERS Safety Report 11367888 (Version 1)
Quarter: 2015Q3

REPORT INFORMATION
  Report Type: Spontaneous
  Country: US (occurrence: None)
  Receive Date: 20150810
  Receipt Date: 20150810
  Transmission Date: 20151125
  Serious: Yes (Other)
  Sender: FDA-Public Use
  Company Number: ADR-2015-01209

PATIENT
  Age: 45 Year
  Sex: Male

DRUGS (2)
  1. BACLOFEN INTRATHECAL 2000MCG/ML [Suspect]
     Active Substance: BACLOFEN
     Indication: MUSCLE SPASTICITY
  2. GABLOFEN [Suspect]
     Active Substance: BACLOFEN
     Indication: MUSCLE SPASTICITY
     Dates: start: 20131122

REACTIONS (5)
  - Muscle spasms [None]
  - Implant site haematoma [None]
  - Fall [None]
  - Abdominal rigidity [None]
  - Musculoskeletal discomfort [None]

NARRATIVE: CASE EVENT DATE: 20130619
